FAERS Safety Report 12906877 (Version 2)
Quarter: 2017Q2

REPORT INFORMATION
  Report Type: Spontaneous
  Country: JP (occurrence: JP)
  Receive Date: 20161103
  Receipt Date: 20170502
  Transmission Date: 20170830
  Serious: Yes (Hospitalization, Other)
  Sender: FDA-Public Use
  Company Number: JP-PFIZER INC-2016505859

PATIENT
  Age: 64 Year
  Sex: Male

DRUGS (1)
  1. SUTENT [Suspect]
     Active Substance: SUNITINIB MALATE
     Indication: RENAL CELL CARCINOMA
     Dosage: 37.5 MG, DAILY, 2 WEEKS ON AND 1 WEEK OFF
     Route: 048
     Dates: start: 20150601

REACTIONS (6)
  - Disseminated intravascular coagulation [Unknown]
  - Hypoglycaemia [Unknown]
  - Hyponatraemia [Unknown]
  - Drug-induced liver injury [Recovering/Resolving]
  - Altered state of consciousness [Unknown]
  - Platelet count decreased [Unknown]

NARRATIVE: CASE EVENT DATE: 201506
